FAERS Safety Report 6974473-4 (Version None)
Quarter: 2010Q3

REPORT INFORMATION
  Report Type: 
  Country: None (occurrence: None)
  Receive Date: 20100909
  Receipt Date: 20080818
  Transmission Date: 20110219
  Serious: No
  Sender: FDA-Public Use
  Company Number: US-WYE-H05630108

PATIENT
  Sex: Female
  Weight: 52.21 kg

DRUGS (6)
  1. PROTONIX [Suspect]
     Indication: GASTROOESOPHAGEAL REFLUX DISEASE
     Route: 048
  2. FISH OIL, HYDROGENATED [Concomitant]
  3. CALTRATE [Concomitant]
  4. CENTRUM SILVER [Concomitant]
  5. CELEBREX [Concomitant]
  6. ESTRADIOL [Concomitant]

REACTIONS (1)
  - BONE DENSITY DECREASED [None]
